FAERS Safety Report 5267265-8 (Version None)
Quarter: 2007Q1

REPORT INFORMATION
  Report Type: 
  Country: None (occurrence: None)
  Receive Date: 20070316
  Receipt Date: 20070315
  Transmission Date: 20070707
  Serious: Yes (Disabling, Other)
  Sender: FDA-Public Use
  Company Number: US-GLAXOSMITHKLINE-A0642847A

PATIENT
  Age: 45 Year
  Sex: Male

DRUGS (5)
  1. AVANDIA [Suspect]
     Dosage: 8MG PER DAY
     Route: 048
     Dates: end: 20070302
  2. SYNTHROID [Concomitant]
  3. GEODON [Concomitant]
  4. LAMICTAL [Concomitant]
  5. EFFEXOR XR [Concomitant]

REACTIONS (6)
  - DYSPNOEA [None]
  - EJECTION FRACTION DECREASED [None]
  - OEDEMA [None]
  - OXYGEN SATURATION DECREASED [None]
  - PULMONARY OEDEMA [None]
  - WHEEZING [None]
